FAERS Safety Report 13844436 (Version 1)
Quarter: 2017Q3

REPORT INFORMATION
  Report Type: Spontaneous
  Country: US (occurrence: US)
  Receive Date: 20170808
  Receipt Date: 20170808
  Transmission Date: 20171127
  Serious: No
  Sender: FDA-Public Use
  Company Number: US-009507513-1708USA003541

PATIENT
  Age: 30 Year
  Sex: Female

DRUGS (3)
  1. VINCRISTINE [Concomitant]
     Active Substance: VINCRISTINE
     Indication: RHABDOMYOSARCOMA
     Dosage: TOTAL OF 6 CYCLES
  2. TEMODAR [Suspect]
     Active Substance: TEMOZOLOMIDE
     Indication: RHABDOMYOSARCOMA
     Dosage: TOTAL OF 6 CYCLES
  3. IRINOTECAN HYDROCHLORIDE. [Concomitant]
     Active Substance: IRINOTECAN HYDROCHLORIDE
     Indication: RHABDOMYOSARCOMA
     Dosage: TOTAL OF 6 CYCLES

REACTIONS (1)
  - Product use in unapproved indication [Unknown]
